FAERS Safety Report 5502475-3 (Version None)
Quarter: 2007Q4

REPORT INFORMATION
  Report Type: 
  Country: None (occurrence: None)
  Receive Date: 20071030
  Receipt Date: 20071018
  Transmission Date: 20080405
  Serious: Yes (Hospitalization)
  Sender: FDA-Public Use
  Company Number: US-PFIZER INC-2007088598

PATIENT
  Sex: Male

DRUGS (1)
  1. SELZENTRY [Suspect]
     Indication: ACQUIRED IMMUNODEFICIENCY SYNDROME

REACTIONS (3)
  - ADVERSE DRUG REACTION [None]
  - FALL [None]
  - GAIT DISTURBANCE [None]
